FAERS Safety Report 7555992-9 (Version None)
Quarter: 2011Q2

REPORT INFORMATION
  Report Type: 
  Country: None (occurrence: None)
  Receive Date: 20110620
  Receipt Date: 20110613
  Transmission Date: 20111010
  Serious: Yes (Hospitalization)
  Sender: FDA-Public Use
  Company Number: US-BRISTOL-MYERS SQUIBB COMPANY-14232441

PATIENT
  Age: 79 Year
  Sex: Male

DRUGS (11)
  1. POTASSIUM CHLORIDE [Concomitant]
     Route: 048
  2. SPIRONOLACTONE [Concomitant]
     Route: 048
  3. TORSEMIDE [Concomitant]
     Route: 048
  4. FLOMAX [Concomitant]
     Route: 048
  5. LANOXIN [Concomitant]
     Route: 048
  6. LIPITOR [Concomitant]
     Route: 048
  7. NIACIN [Concomitant]
     Route: 048
  8. COUMADIN [Suspect]
     Indication: THROMBOSIS PROPHYLAXIS
     Dosage: 1 DOSAGE FORM = 2MG T,TH AND 4MG M,W, F, SAT, SUN.
     Route: 048
     Dates: start: 20070813, end: 20080616
  9. PLACEBO [Suspect]
     Indication: THROMBOSIS PROPHYLAXIS
     Route: 048
     Dates: start: 20070813, end: 20080616
  10. METOLAZONE [Concomitant]
     Route: 048
  11. FERROUS SULFATE TAB [Concomitant]
     Route: 048

REACTIONS (2)
  - PLATELET COUNT DECREASED [None]
  - LOWER GASTROINTESTINAL HAEMORRHAGE [None]
